FAERS Safety Report 9703419 (Version 2)
Quarter: 2013Q4

REPORT INFORMATION
  Report Type: Report from Study
  Country: FR (occurrence: FR)
  Receive Date: 20131122
  Receipt Date: 20131122
  Transmission Date: 20140711
  Serious: Yes (Hospitalization)
  Sender: FDA-Public Use
  Company Number: FR-TEVA-431863USA

PATIENT
  Age: 70 Year
  Sex: Female

DRUGS (2)
  1. BENDAMUSTINE [Suspect]
     Indication: LYMPHOMA
     Route: 042
     Dates: start: 20130422, end: 20130423
  2. RITUXIMAB [Suspect]
     Indication: LYMPHOMA
     Route: 042
     Dates: start: 20130422, end: 20130423

REACTIONS (2)
  - Aplasia [Recovered/Resolved]
  - Paraneoplastic syndrome [Recovered/Resolved]
